FAERS Safety Report 11574215 (Version 1)
Quarter: 2015Q3

REPORT INFORMATION
  Report Type: Spontaneous
  Country: US (occurrence: US)
  Receive Date: 20150930
  Receipt Date: 20150930
  Transmission Date: 20151125
  Serious: Yes (Other)
  Sender: FDA-Public Use
  Company Number: US-SUN PHARMACEUTICAL INDUSTRIES LTD-13SUNGE15P

PATIENT
  Age: 52 Year
  Sex: Female

DRUGS (5)
  1. GEMCITABINE [Suspect]
     Active Substance: GEMCITABINE\GEMCITABINE HYDROCHLORIDE
     Indication: BREAST CANCER STAGE IV
     Dosage: 1250 MG/M^2 ONCE EVERY 2 WEEKS IN A 4WEEK CYCLE
     Route: 042
     Dates: start: 200811, end: 20100528
  2. GEMCITABINE [Suspect]
     Active Substance: GEMCITABINE\GEMCITABINE HYDROCHLORIDE
     Indication: BREAST CANCER STAGE IV
     Dosage: 1500 MG/M^2 ONCE EVERY 2 WEEKS IN A 4WEEK CYCLE
     Route: 042
     Dates: start: 20071121, end: 200811
  3. BEVACIZUMAB [Suspect]
     Active Substance: BEVACIZUMAB
     Indication: BREAST CANCER STAGE IV
     Dosage: 10 MG/KG ONCE EVERY 2 WEEKS IN A 4WEEK CYCLE
     Route: 042
     Dates: start: 20071121, end: 20100528
  4. PACLIAXEL [Suspect]
     Active Substance: PACLITAXEL
     Indication: BREAST CANCER STAGE IV
     Dosage: 125 MG/M^2 ONCE EVERY 2 WEEKS IN A 4WEEK CYCLE
     Route: 042
     Dates: start: 200811, end: 20100528
  5. PACLIAXEL [Suspect]
     Active Substance: PACLITAXEL
     Indication: BREAST CANCER STAGE IV
     Dosage: 150 MG/M^2 ONCE EVERY 2 WEEKS IN A 4WEEK CYCLE
     Route: 042
     Dates: start: 20071121, end: 200811

REACTIONS (2)
  - Disease progression [Not Recovered/Not Resolved]
  - Fatigue [Recovered/Resolved]
